FAERS Safety Report 9975311 (Version 1)
Quarter: 2014Q1

REPORT INFORMATION
  Report Type: Report from Study
  Country: US (occurrence: US)
  Receive Date: 20140306
  Receipt Date: 20140306
  Transmission Date: 20141002
  Serious: No
  Sender: FDA-Public Use
  Company Number: US-ABBVIE-13P-163-1158233-00

PATIENT
  Age: 51 Year
  Sex: Male

DRUGS (12)
  1. HUMIRA [Suspect]
     Indication: CROHN^S DISEASE
     Dates: start: 20131009
  2. SULFASALAZINE [Concomitant]
     Indication: CROHN^S DISEASE
  3. TRAMADOL [Concomitant]
     Indication: PAIN
     Dosage: 2, 4 TIMES A DAY
  4. TIZANIDINE [Concomitant]
     Indication: PRODUCT USED FOR UNKNOWN INDICATION
  5. CLONAZEPAM [Concomitant]
     Indication: PRODUCT USED FOR UNKNOWN INDICATION
  6. FOLIC ACID [Concomitant]
     Indication: GASTROOESOPHAGEAL REFLUX DISEASE
     Dosage: 1MG DAILY
  7. PRAZOSIN [Concomitant]
     Indication: SLEEP DISORDER
     Dosage: AT BEDTIME
  8. CYMBALTA [Concomitant]
     Indication: DEPRESSION
  9. LUNESTA [Concomitant]
     Indication: INSOMNIA
     Dosage: AT BEDTIME
  10. HYDROMORPHONE [Concomitant]
     Indication: PAIN
     Dosage: EVERY 4-6 HOURS
  11. TESTOSTERONE [Concomitant]
     Indication: PRODUCT USED FOR UNKNOWN INDICATION
  12. FENTANYL [Concomitant]
     Indication: PAIN
     Dosage: PATCH/CHANGE EVERY 2 DAYS

REACTIONS (1)
  - Injection site pain [Recovered/Resolved]
